FAERS Safety Report 10189879 (Version 1)
Quarter: 2014Q2

REPORT INFORMATION
  Report Type: Spontaneous
  Country: US (occurrence: US)
  Receive Date: 20140522
  Receipt Date: 20140522
  Transmission Date: 20141212
  Serious: Yes (Hospitalization)
  Sender: FDA-Public Use
  Company Number: US-SANOFI-AVENTIS-2013SA070092

PATIENT
  Age: 59 Year
  Sex: Male
  Weight: 64.86 kg

DRUGS (6)
  1. LANTUS SOLOSTAR [Suspect]
     Indication: DIABETES MELLITUS
     Dosage: DOSE:22 UNIT(S)
     Route: 058
  2. SOLOSTAR [Suspect]
  3. HYDROCHLOROTHIAZIDE [Concomitant]
     Route: 065
  4. QUINAPRIL [Concomitant]
     Route: 065
  5. AMLODIPINE BESILATE [Concomitant]
     Route: 065
  6. UNKNOWDRUG [Concomitant]
     Dosage: 20 OR 30 MG
     Route: 065

REACTIONS (1)
  - Blood glucose fluctuation [Unknown]
